FAERS Safety Report 14688073 (Version 2)
Quarter: 2018Q3

REPORT INFORMATION
  Report Type: Spontaneous
  Country: US (occurrence: US)
  Receive Date: 20180328
  Receipt Date: 20180803
  Transmission Date: 20181010
  Serious: Yes (Other)
  Sender: FDA-Public Use
  Company Number: US-PFIZER INC-2018128116

PATIENT
  Age: 74 Year
  Sex: Male
  Weight: 132.9 kg

DRUGS (1)
  1. LYRICA [Suspect]
     Active Substance: PREGABALIN
     Indication: DIABETIC NEUROPATHY
     Dosage: 50 MG, 3X/DAY
     Route: 048
     Dates: start: 201711, end: 20180207

REACTIONS (6)
  - Fluid overload [Unknown]
  - Drug interaction [Unknown]
  - Weight increased [Recovered/Resolved]
  - Gravitational oedema [Unknown]
  - Skin disorder [Unknown]
  - Fluid retention [Recovered/Resolved]

NARRATIVE: CASE EVENT DATE: 201801
